FAERS Safety Report 7215902-0 (Version None)
Quarter: 2011Q1

REPORT INFORMATION
  Report Type: 
  Country: None (occurrence: None)
  Receive Date: 20110107
  Receipt Date: 20101224
  Transmission Date: 20110831
  Serious: No
  Sender: FDA-Public Use
  Company Number: US-B.I. PHARMACEUTICALS,INC./RIDGEFIELD-2011-BP-00119BP

PATIENT
  Age: 78 Year
  Sex: Male

DRUGS (5)
  1. METOPROLOL [Concomitant]
     Indication: HEART RATE IRREGULAR
  2. PRADAXA [Suspect]
     Indication: ATRIAL FIBRILLATION
     Dosage: 300 MG
     Route: 048
     Dates: start: 20101201, end: 20101226
  3. MULTI-VITAMINS [Concomitant]
  4. PLAVIX [Concomitant]
     Indication: ATRIAL FIBRILLATION
  5. ZETIA [Concomitant]

REACTIONS (5)
  - MUSCLE SPASMS [None]
  - CHROMATURIA [None]
  - ABDOMINAL DISCOMFORT [None]
  - PRURITUS [None]
  - CONTUSION [None]
